FAERS Safety Report 9799562 (Version 1)
Quarter: 2014Q1

REPORT INFORMATION
  Report Type: Spontaneous
  Country: US (occurrence: US)
  Receive Date: 20140106
  Receipt Date: 20140106
  Transmission Date: 20141002
  Serious: No
  Sender: FDA-Public Use
  Company Number: US-GILEAD-2010-0030285

PATIENT
  Sex: Female

DRUGS (15)
  1. LETAIRIS [Suspect]
     Indication: PULMONARY ARTERIAL HYPERTENSION
     Route: 048
     Dates: start: 20100612
  2. VIT D HIGH [Concomitant]
  3. MULTI TAB FOR HER [Concomitant]
  4. VIT C + E [Concomitant]
  5. PROAIR HFA [Concomitant]
  6. MOBIC [Concomitant]
  7. KLOR-CON [Concomitant]
  8. AMIODARONE [Concomitant]
  9. METOLAZONE [Concomitant]
  10. CARDIZEM LA [Concomitant]
  11. LACTULOSE [Concomitant]
  12. FUROSEMIDE [Concomitant]
  13. COUMADIN [Concomitant]
  14. REVATIO [Concomitant]
  15. LIPITOR [Concomitant]

REACTIONS (1)
  - Local swelling [Unknown]
